FAERS Safety Report 9998129 (Version 1)
Quarter: 2014Q1

REPORT INFORMATION
  Report Type: Spontaneous
  Country: US (occurrence: None)
  Receive Date: 20140304
  Receipt Date: 20140304
  Transmission Date: 20141002
  Serious: Yes (Hospitalization)
  Sender: FDA-Public Use
  Company Number: RB-52736-2013

PATIENT
  Sex: 0

DRUGS (3)
  1. SUBOXONE [Suspect]
     Dosage: (DOSING MOTHER WAS PRESCRIBED 2 MG TWICE DAILY BUT  SOMETIMES TAKES 2 MG DAILY OR 2 OR E TIMES DAILY TRANSPLACENTAL)
     Route: 064
     Dates: end: 20051116
  2. SUBUTEX [Suspect]
  3. PRENATAL VITAMINS [Suspect]
     Dosage: (DOSING DETAILS TRANSPLACENTAL)
     Route: 064
     Dates: end: 20060816

REACTIONS (2)
  - Foetal exposure during pregnancy [None]
  - Drug withdrawal syndrome neonatal [None]
